FAERS Safety Report 11181203 (Version 2)
Quarter: 2015Q3

REPORT INFORMATION
  Report Type: Report from Study
  Country: JP (occurrence: JP)
  Receive Date: 20150611
  Receipt Date: 20150716
  Transmission Date: 20151125
  Serious: Yes (Hospitalization, Other)
  Sender: FDA-Public Use
  Company Number: JP-EISAI MEDICAL RESEARCH-EC-2015-007580

PATIENT
  Age: 86 Year
  Sex: Male

DRUGS (11)
  1. ARICEPT [Suspect]
     Active Substance: DONEPEZIL HYDROCHLORIDE
     Indication: DEMENTIA ALZHEIMER^S TYPE
     Route: 048
     Dates: start: 20131111, end: 20131220
  2. LUDIOMIL [Concomitant]
     Active Substance: MAPROTILINE HYDROCHLORIDE
  3. ARICEPT [Suspect]
     Active Substance: DONEPEZIL HYDROCHLORIDE
     Route: 048
     Dates: start: 20131221
  4. GASTER [Concomitant]
     Active Substance: FAMOTIDINE
  5. EXFORGE [Concomitant]
     Active Substance: AMLODIPINE BESYLATE\VALSARTAN
  6. DIOVAN [Concomitant]
     Active Substance: VALSARTAN
  7. BAYASPIRIN [Concomitant]
     Active Substance: ASPIRIN
  8. LOXONIN [Concomitant]
     Active Substance: LOXOPROFEN SODIUM
  9. LANDSEN [Concomitant]
     Active Substance: CLONAZEPAM
  10. NORVASC [Concomitant]
     Active Substance: AMLODIPINE BESYLATE
  11. MAGNESIUM OXIDE. [Concomitant]
     Active Substance: MAGNESIUM OXIDE

REACTIONS (2)
  - Pneumonia [Recovered/Resolved]
  - Cardiac failure [Recovering/Resolving]

NARRATIVE: CASE EVENT DATE: 20131125
